FAERS Safety Report 6229066-3 (Version None)
Quarter: 2009Q2

REPORT INFORMATION
  Report Type: 
  Country: None (occurrence: None)
  Receive Date: 20090615
  Receipt Date: 20090604
  Transmission Date: 20091009
  Serious: Yes (Hospitalization)
  Sender: FDA-Public Use
  Company Number: US-BIOGENIDEC-2006BI015991

PATIENT
  Age: 58 Year
  Sex: Female
  Weight: 58 kg

DRUGS (13)
  1. TYSABRI [Suspect]
     Indication: MULTIPLE SCLEROSIS
     Route: 042
     Dates: start: 20061010, end: 20090116
  2. ZOLOFT [Concomitant]
  3. OXYBUTYNIN [Concomitant]
  4. TRAMADOL HCL [Concomitant]
  5. ADVAIR DISKUS 100/50 [Concomitant]
  6. FLOVENT [Concomitant]
  7. TRAZODONE HCL [Concomitant]
  8. LORTAB [Concomitant]
  9. PHENERGAN [Concomitant]
  10. RESTORIL [Concomitant]
  11. ATROVENT [Concomitant]
  12. COREG CR [Concomitant]
     Indication: CARDIAC FAILURE CONGESTIVE
  13. RYTHMOL [Concomitant]
     Indication: CARDIAC FAILURE CONGESTIVE

REACTIONS (13)
  - BRONCHITIS [None]
  - CARDIAC FAILURE CONGESTIVE [None]
  - CATARACT [None]
  - CHEST PAIN [None]
  - COGNITIVE DISORDER [None]
  - DIZZINESS [None]
  - EJECTION FRACTION DECREASED [None]
  - GAIT DISTURBANCE [None]
  - GLAUCOMA [None]
  - HAEMORRHAGE [None]
  - IMPLANTABLE DEFIBRILLATOR INSERTION [None]
  - OPTIC NERVE INJURY [None]
  - VISION BLURRED [None]
